FAERS Safety Report 10316530 (Version 2)
Quarter: 2015Q1

REPORT INFORMATION
  Report Type: Other
  Country: US (occurrence: US)
  Receive Date: 20140719
  Receipt Date: 20150320
  Transmission Date: 20150720
  Serious: Yes (Hospitalization, Other)
  Sender: FDA-Public Use
  Company Number: US-GSKPPD-2014GSK017170

PATIENT
  Age: 60 Year
  Sex: Female
  Weight: 210.2 kg

DRUGS (11)
  1. AVANDIA [Suspect]
     Active Substance: ROSIGLITAZONE MALEATE
     Indication: DIABETES MELLITUS
     Dosage: AVANDIA WAS NOT LISTED AMONG THE PATIENTS APPLICABLE RECORDS REVIEWED.
     Route: 048
  2. LISINOPRIL. [Concomitant]
     Active Substance: LISINOPRIL
  3. LASIX [Concomitant]
     Active Substance: FUROSEMIDE
  4. ALDACTONE [Concomitant]
     Active Substance: SPIRONOLACTONE
  5. COREG [Concomitant]
     Active Substance: CARVEDILOL
  6. TIMOLOL [Concomitant]
     Active Substance: TIMOLOL
  7. ASPIRIN. [Concomitant]
     Active Substance: ASPIRIN
  8. DAIMOX [Concomitant]
  9. ZAROXOLYN [Concomitant]
     Active Substance: METOLAZONE
  10. NITROGLYCERIN SR [Concomitant]
     Active Substance: NITROGLYCERIN
  11. PLAVIX [Concomitant]
     Active Substance: CLOPIDOGREL BISULFATE

REACTIONS (1)
  - Cardiac failure congestive [Recovered/Resolved]

NARRATIVE: CASE EVENT DATE: 20110403
